FAERS Safety Report 24983040 (Version 1)
Quarter: 2025Q1

REPORT INFORMATION
  Report Type: Report from Study
  Country: CA (occurrence: CA)
  Receive Date: 20250218
  Receipt Date: 20250218
  Transmission Date: 20250408
  Serious: Yes (Other)
  Sender: ABBVIE
  Company Number: CA-ABBVIE-6136587

PATIENT
  Sex: Female

DRUGS (2)
  1. SKYRIZI [Suspect]
     Active Substance: RISANKIZUMAB-RZAA
     Indication: Crohn^s disease
     Route: 058
  2. ABREVA [Concomitant]
     Active Substance: DOCOSANOL
     Indication: Product used for unknown indication

REACTIONS (4)
  - Stomal hernia [Unknown]
  - General symptom [Unknown]
  - Pain [Unknown]
  - Gastrointestinal stoma output increased [Unknown]
